APPROVED DRUG PRODUCT: FLUOCINONIDE
Active Ingredient: FLUOCINONIDE
Strength: 0.1%
Dosage Form/Route: CREAM;TOPICAL
Application: A211111 | Product #001
Applicant: AMNEAL PHARMACEUTICALS LLC
Approved: Jun 4, 2018 | RLD: No | RS: No | Type: DISCN